FAERS Safety Report 5236265-6 (Version None)
Quarter: 2007Q1

REPORT INFORMATION
  Report Type: 
  Country: None (occurrence: None)
  Receive Date: 20070212
  Receipt Date: 20070205
  Transmission Date: 20070707
  Serious: Yes (Hospitalization, Other)
  Sender: FDA-Public Use
  Company Number: US-ABBOTT-07P-163-0358267-00

PATIENT
  Sex: Male

DRUGS (1)
  1. HUMIRA [Suspect]
     Indication: RHEUMATOID ARTHRITIS
     Dates: start: 20060201

REACTIONS (6)
  - ABNORMAL BEHAVIOUR [None]
  - IMPAIRED WORK ABILITY [None]
  - INFECTION [None]
  - NECK PAIN [None]
  - PNEUMONIA [None]
  - VERTEBRAL INJURY [None]
